FAERS Safety Report 7949929-8 (Version None)
Quarter: 2011Q4

REPORT INFORMATION
  Report Type: 
  Country: None (occurrence: None)
  Receive Date: 20111130
  Receipt Date: 20111122
  Transmission Date: 20120403
  Serious: Yes (Hospitalization)
  Sender: FDA-Public Use
  Company Number: FR-BRISTOL-MYERS SQUIBB COMPANY-16253064

PATIENT
  Age: 41 Year
  Sex: Male

DRUGS (3)
  1. CRESTOR [Suspect]
  2. GLUCOPHAGE [Suspect]
     Indication: TYPE 2 DIABETES MELLITUS
     Dosage: 14SEP-17OCT11(33D),500MG 17OCT-16NOV11(30D),1000MG,2/D
     Route: 048
     Dates: start: 20110914, end: 20111116
  3. ASPIRIN [Suspect]

REACTIONS (2)
  - PANCREATITIS [None]
  - CHOLELITHIASIS [None]
